FAERS Safety Report 9367059 (Version 1)
Quarter: 2013Q2

REPORT INFORMATION
  Report Type: Spontaneous
  Country: US (occurrence: US)
  Receive Date: 20130625
  Receipt Date: 20130625
  Transmission Date: 20140414
  Serious: No
  Sender: FDA-Public Use
  Company Number: US-ASTRAZENECA-2013SE46560

PATIENT
  Age: 48 Year
  Sex: Male
  Weight: 125.2 kg

DRUGS (8)
  1. BRILINTA [Suspect]
     Indication: CORONARY ARTERY DISEASE
     Route: 048
     Dates: start: 20130403, end: 20130412
  2. ASPIRIN [Concomitant]
  3. VENLAFAXINE [Concomitant]
  4. AMLODIPINE [Concomitant]
  5. FENOFIBRATE [Concomitant]
  6. GENDON [Concomitant]
  7. OXCARBAZEPINE [Concomitant]
     Dosage: 150 MG 4 TABS BID
  8. ALPRAZOLAM [Concomitant]
     Dosage: 1 MG 5 TIMES A DAY PRN

REACTIONS (2)
  - Sleep disorder due to a general medical condition [Unknown]
  - Dyspnoea [Recovered/Resolved]
